FAERS Safety Report 7794562-4 (Version None)
Quarter: 2011Q4

REPORT INFORMATION
  Report Type: 
  Country: None (occurrence: None)
  Receive Date: 20111004
  Receipt Date: 20110930
  Transmission Date: 20120403
  Serious: Yes (Hospitalization, Other)
  Sender: FDA-Public Use
  Company Number: JP-ABBOTT-11P-087-0724439-00

PATIENT
  Sex: Male
  Weight: 80 kg

DRUGS (7)
  1. SULFASALAZINE [Concomitant]
     Indication: CROHN'S DISEASE
     Route: 048
     Dates: start: 20060901
  2. HUMIRA [Suspect]
     Dates: start: 20110623, end: 20110623
  3. HUMIRA [Suspect]
     Indication: CROHN'S DISEASE
     Dates: start: 20110422, end: 20110422
  4. MESALAMINE [Concomitant]
     Indication: CROHN'S DISEASE
     Route: 048
     Dates: start: 20060901
  5. FERROUS CITRATE [Concomitant]
     Indication: IRON DEFICIENCY ANAEMIA
     Dates: start: 20060901
  6. METRONIDAZOLE [Concomitant]
     Indication: CROHN'S DISEASE
     Route: 048
     Dates: start: 20060901
  7. MERCAPTOPURINE [Suspect]
     Indication: CROHN'S DISEASE
     Route: 048
     Dates: start: 20060901

REACTIONS (5)
  - LACUNAR INFARCTION [None]
  - HEADACHE [None]
  - HEMIPARESIS [None]
  - HERPES ZOSTER OPHTHALMIC [None]
  - DYSLALIA [None]
